FAERS Safety Report 19955338 (Version 2)
Quarter: 2021Q4

REPORT INFORMATION
  Report Type: Spontaneous
  Country: US (occurrence: US)
  Receive Date: 20211013
  Receipt Date: 20211027
  Transmission Date: 20220303
  Serious: Yes (Other)
  Sender: FDA-Public Use
  Company Number: US-FARMAPROD-202110-1782

PATIENT
  Sex: Female

DRUGS (23)
  1. OXERVATE [Suspect]
     Active Substance: CENEGERMIN-BKBJ
     Indication: Neurotrophic keratopathy
     Route: 047
     Dates: start: 20210909
  2. OXERVATE [Suspect]
     Active Substance: CENEGERMIN-BKBJ
     Indication: Ulcerative keratitis
  3. CEPHALEXIN [Concomitant]
     Active Substance: CEPHALEXIN
  4. NOVOLOG [Concomitant]
     Active Substance: INSULIN ASPART
  5. TRESIBA [Concomitant]
     Active Substance: INSULIN DEGLUDEC
  6. DONEPEZIL HYDROCHLORIDE [Concomitant]
     Active Substance: DONEPEZIL HYDROCHLORIDE
  7. METFORMIN [Concomitant]
     Active Substance: METFORMIN HYDROCHLORIDE
  8. BUPROPION HYDROCHLORIDE [Concomitant]
     Active Substance: BUPROPION HYDROCHLORIDE
  9. LOSARTAN POTASSIUM [Concomitant]
     Active Substance: LOSARTAN POTASSIUM
  10. PRAMIPEXOLE DIHYDROCHLORIDE [Concomitant]
     Active Substance: PRAMIPEXOLE DIHYDROCHLORIDE
  11. HYDROCHLOROTHIAZIDE [Concomitant]
     Active Substance: HYDROCHLOROTHIAZIDE
  12. SYSTANE (HYPROMELLOSE 2910 (4000 MPA.S)) [Concomitant]
     Active Substance: HYPROMELLOSE 2910 (4000 MPA.S)
  13. CLARITIN-D NOS [Concomitant]
     Active Substance: LORATADINE\PSEUDOEPHEDRINE SULFATE
  14. VITAMINS [Concomitant]
     Active Substance: VITAMINS
  15. MAGNESIUM [Concomitant]
     Active Substance: MAGNESIUM
  16. FISH OIL [Concomitant]
     Active Substance: FISH OIL
  17. LOVASTATIN [Concomitant]
     Active Substance: LOVASTATIN
  18. DULOXETINE HYDROCHLORIDE [Concomitant]
     Active Substance: DULOXETINE HYDROCHLORIDE
  19. AMLODIPINE BESYLATE [Concomitant]
     Active Substance: AMLODIPINE BESYLATE
  20. PROBIOTIC 10B CELL [Concomitant]
  21. REFRESH CLASSIC [Concomitant]
     Active Substance: POLYVINYL ALCOHOL\POVIDONE
  22. ERYTHROMYCIN [Concomitant]
     Active Substance: ERYTHROMYCIN
     Dates: start: 20210816, end: 20210826
  23. ARTIFICIAL TEARS [Concomitant]
     Active Substance: GLYCERIN\HYPROMELLOSES\POLYETHYLENE GLYCOL 400
     Dates: start: 20210816

REACTIONS (2)
  - Cellulitis [Unknown]
  - Lacrimation increased [Recovering/Resolving]
